FAERS Safety Report 25517760 (Version 1)
Quarter: 2025Q3

REPORT INFORMATION
  Report Type: Spontaneous
  Country: EU (occurrence: EU)
  Receive Date: 20250704
  Receipt Date: 20250704
  Transmission Date: 20251021
  Serious: Yes (Other)
  Sender: ASTELLAS
  Company Number: EU-ASTELLAS-2022US005599

PATIENT
  Age: 67 Year
  Sex: Male

DRUGS (2)
  1. ENZALUTAMIDE [Suspect]
     Active Substance: ENZALUTAMIDE
     Indication: Prostate cancer
     Dosage: 4 DF, ONCE DAILY (INITIATION OF TREATMENT WITH 4 TABLET / DAY)
     Route: 065
     Dates: start: 202007
  2. GOSERELIN [Concomitant]
     Active Substance: GOSERELIN
     Indication: Adverse drug reaction
     Route: 065

REACTIONS (6)
  - Extrasystoles [Unknown]
  - Ejection fraction decreased [Unknown]
  - Weight decreased [Unknown]
  - Decreased appetite [Unknown]
  - Hypertension [Unknown]
  - Herpes zoster [Recovering/Resolving]

NARRATIVE: CASE EVENT DATE: 20210201
